FAERS Safety Report 8769543 (Version 1)
Quarter: 2012Q4

REPORT INFORMATION
  Report Type: 
  Country: US (occurrence: US)
  Receive Date: 20120904
  Receipt Date: 20120904
  Transmission Date: 20130627
  Serious: No
  Sender: FDA-Public Use
  Company Number: US-PFIZER INC-2012214895

PATIENT
  Sex: Female

DRUGS (2)
  1. LYRICA [Suspect]
     Dosage: 50 mg, at bedtime
     Dates: start: 2007
  2. AMITRIPTYLINE [Suspect]
     Dosage: UNK

REACTIONS (2)
  - Somnolence [Unknown]
  - Feeling abnormal [Unknown]
